FAERS Safety Report 11088368 (Version 17)
Quarter: 2018Q3

REPORT INFORMATION
  Report Type: Report from Study
  Country: CA (occurrence: CA)
  Receive Date: 20150504
  Receipt Date: 20180703
  Transmission Date: 20181010
  Serious: Yes (Hospitalization, Other)
  Sender: FDA-Public Use
  Company Number: PHHY2015CA050764

PATIENT
  Age: 55 Year
  Sex: Male

DRUGS (5)
  1. SANDOSTATIN LAR DEPOT [Suspect]
     Active Substance: OCTREOTIDE ACETATE
     Indication: NEUROENDOCRINE CARCINOMA METASTATIC
     Dosage: 30 MG, QMO (EVERY 4 WEEKS)
     Route: 030
     Dates: start: 20150414, end: 20160912
  2. SANDOSTATIN LAR DEPOT [Suspect]
     Active Substance: OCTREOTIDE ACETATE
     Dosage: 20 MG, UNK
     Route: 030
     Dates: start: 2015
  3. SANDOSTATIN LAR DEPOT [Suspect]
     Active Substance: OCTREOTIDE ACETATE
     Dosage: 60 MG, QMO
     Route: 030
     Dates: start: 20161007
  4. SANDOSTATIN [Suspect]
     Active Substance: OCTREOTIDE ACETATE
     Indication: NEUROENDOCRINE CARCINOMA METASTATIC
     Dosage: 200 UG, BID
     Route: 058
     Dates: start: 20150402
  5. SANDOSTATIN [Suspect]
     Active Substance: OCTREOTIDE ACETATE
     Dosage: 200 UG, TID
     Route: 058

REACTIONS (18)
  - Second primary malignancy [Unknown]
  - Asthenia [Unknown]
  - Injection site pain [Recovering/Resolving]
  - Incorrect dose administered [Unknown]
  - Diarrhoea [Unknown]
  - Blood pressure systolic increased [Unknown]
  - Bone cancer [Unknown]
  - Anxiety [Unknown]
  - Back pain [Unknown]
  - Drug dispensing error [Unknown]
  - Nerve compression [Unknown]
  - Post procedural complication [Unknown]
  - Pneumonia [Unknown]
  - Dyspnoea [Unknown]
  - Post procedural haemorrhage [Unknown]
  - Malnutrition [Unknown]
  - Skin disorder [Unknown]
  - Paraesthesia [Unknown]

NARRATIVE: CASE EVENT DATE: 2015
